FAERS Safety Report 26044475 (Version 1)
Quarter: 2025Q4

REPORT INFORMATION
  Report Type: Spontaneous
  Country: US (occurrence: US)
  Receive Date: 20251114
  Receipt Date: 20251114
  Transmission Date: 20260117
  Serious: No
  Sender: BAUSCH AND LOMB
  Company Number: US-BAUSCH-BH-2025-020286

PATIENT
  Age: 21 Year
  Sex: Female

DRUGS (1)
  1. CABTREO [Suspect]
     Active Substance: ADAPALENE\BENZOYL PEROXIDE\CLINDAMYCIN PHOSPHATE
     Indication: Product used for unknown indication
     Dosage: TOPICAL GEL
     Route: 065

REACTIONS (1)
  - Hypoaesthesia oral [Unknown]
